FAERS Safety Report 21698007 (Version 3)
Quarter: 2022Q4

REPORT INFORMATION
  Report Type: Spontaneous
  Country: JP (occurrence: JP)
  Receive Date: 20221208
  Receipt Date: 20221229
  Transmission Date: 20230112
  Serious: Yes (Hospitalization)
  Sender: FDA-Public Use
  Company Number: JP-002147023-NVSJ2022JP100521

PATIENT
  Age: 41 Year
  Sex: Female
  Weight: 66 kg

DRUGS (10)
  1. NEORAL [Suspect]
     Active Substance: CYCLOSPORINE
     Indication: Urticarial vasculitis
     Dosage: 200 MG, QD
     Route: 048
     Dates: start: 20201109
  2. AMLODIPINE [Suspect]
     Active Substance: AMLODIPINE BESYLATE
     Indication: Hypertension
     Dosage: 50 MG, QD
     Route: 048
     Dates: start: 20210308, end: 20211117
  3. RUPAFIN [Suspect]
     Active Substance: RUPATADINE FUMARATE
     Indication: Urticarial vasculitis
     Dosage: 10 MG, BID
     Route: 048
     Dates: start: 20200727, end: 20211117
  4. LAFUTIDINE [Suspect]
     Active Substance: LAFUTIDINE
     Indication: Urticarial vasculitis
     Dosage: 10 MG, BID
     Route: 048
     Dates: start: 20200727
  5. BONALON [Suspect]
     Active Substance: ALENDRONATE SODIUM
     Indication: Osteoporosis
     Dosage: 35 MG, QW
     Route: 048
     Dates: start: 20200812
  6. PREDNISOLONE [Suspect]
     Active Substance: PREDNISOLONE
     Indication: Urticarial vasculitis
     Dosage: 8 MG, QD
     Route: 048
     Dates: start: 20200812
  7. PREDNISOLONE [Suspect]
     Active Substance: PREDNISOLONE
     Dosage: 5 MG, QD
     Route: 048
  8. NU-LOTAN [Suspect]
     Active Substance: LOSARTAN POTASSIUM
     Indication: Hypertension
     Dosage: 50 MG, QD
     Route: 048
     Dates: start: 20210104, end: 20211117
  9. CLARITIN [Suspect]
     Active Substance: LORATADINE
     Indication: Urticarial vasculitis
     Dosage: 10 MG, BID
     Route: 065
     Dates: start: 20211122, end: 20220614
  10. NIFEDIPINE [Suspect]
     Active Substance: NIFEDIPINE
     Indication: Hypertension
     Dosage: 20 MG, QD
     Route: 065
     Dates: start: 20220428

REACTIONS (3)
  - Premature delivery [Recovered/Resolved]
  - Maternal exposure during pregnancy [Unknown]
  - Maternal exposure during breast feeding [Unknown]

NARRATIVE: CASE EVENT DATE: 20220610
